FAERS Safety Report 9408846 (Version 1)
Quarter: 2013Q3

REPORT INFORMATION
  Report Type: Spontaneous
  Country: US (occurrence: US)
  Receive Date: 20130719
  Receipt Date: 20130719
  Transmission Date: 20140515
  Serious: No
  Sender: FDA-Public Use
  Company Number: US-B.I. PHARMACEUTICALS,INC./RIDGEFIELD-2013-BI-20613BP

PATIENT
  Age: 57 Year
  Sex: Male

DRUGS (14)
  1. SPIRIVA [Suspect]
     Indication: CHRONIC OBSTRUCTIVE PULMONARY DISEASE
     Dosage: 18 MCG
     Route: 048
     Dates: start: 201306
  2. COMBIVENT [Suspect]
     Indication: CHRONIC OBSTRUCTIVE PULMONARY DISEASE
     Dosage: STRENGTH: 18 MCG / 103 MCG; DAILY DOSE: 72 MCG/412 MCG
     Route: 055
  3. ADVAIR [Concomitant]
     Route: 055
  4. GLUCOPHAGE [Concomitant]
     Indication: DIABETES MELLITUS
     Route: 048
  5. FOLIC ACID [Concomitant]
     Route: 048
  6. PROZAC [Concomitant]
     Route: 048
  7. LANTUS [Concomitant]
     Route: 058
  8. VALIUM [Concomitant]
     Route: 048
  9. HUMALOG [Concomitant]
     Route: 058
  10. TRAZODONE [Concomitant]
     Route: 048
  11. BENTYL [Concomitant]
     Indication: IRRITABLE BOWEL SYNDROME
     Route: 048
  12. METHOTREXATE [Concomitant]
     Indication: SARCOIDOSIS
     Route: 048
  13. NORCO [Concomitant]
     Route: 048
  14. SULFASALAZINE [Concomitant]
     Route: 048

REACTIONS (2)
  - Chromaturia [Not Recovered/Not Resolved]
  - Incorrect route of drug administration [Recovered/Resolved]
